FAERS Safety Report 5096528-4 (Version None)
Quarter: 2006Q3

REPORT INFORMATION
  Report Type: 
  Country: None (occurrence: None)
  Receive Date: 20060830
  Receipt Date: 20060821
  Transmission Date: 20061208
  Serious: Yes (Hospitalization)
  Sender: FDA-Public Use
  Company Number: 2006P1000348

PATIENT
  Age: 79 Year
  Sex: Female

DRUGS (15)
  1. RETEPLASE (RETEPLASE) [Suspect]
     Indication: ACUTE MYOCARDIAL INFARCTION
     Dosage: IV
     Route: 042
     Dates: start: 20060206
  2. REOPRO [Suspect]
     Indication: ACUTE MYOCARDIAL INFARCTION
     Dosage: IV
     Route: 042
     Dates: start: 20060206, end: 20060206
  3. ALBYL-ENTEROSOLUBILE [Concomitant]
  4. CLOPIDOGREL [Concomitant]
  5. DIGOXIN [Concomitant]
  6. FUROSEMIDE [Concomitant]
  7. POTASSIUM CHLORIDE [Concomitant]
  8. ESOMEPRAZOLE MAGNESIUM [Concomitant]
  9. PARACETAMOL [Concomitant]
  10. METOPROLOL SUCCINATE [Concomitant]
  11. GLUCOSAMINE [Concomitant]
  12. SIMVASTATIN [Concomitant]
  13. WARFARIN SODIUM [Concomitant]
  14. IRON [Concomitant]
  15. ISOSORBIDE MONONITRATE [Concomitant]

REACTIONS (15)
  - ANGINA PECTORIS [None]
  - ANURIA [None]
  - ATRIAL FIBRILLATION [None]
  - BLOOD PRESSURE INCREASED [None]
  - CARDIAC FAILURE CONGESTIVE [None]
  - CARPAL TUNNEL SYNDROME [None]
  - CHEST DISCOMFORT [None]
  - CHEST PAIN [None]
  - DRUG INEFFECTIVE [None]
  - EXTRASYSTOLES [None]
  - GASTRITIS [None]
  - HYPERTENSION [None]
  - HYPOTENSION [None]
  - PLEURISY [None]
  - PNEUMONIA [None]
